FAERS Safety Report 11237093 (Version 3)
Quarter: 2015Q4

REPORT INFORMATION
  Report Type: Report from Study
  Country: US (occurrence: US)
  Receive Date: 20150703
  Receipt Date: 20151224
  Transmission Date: 20160304
  Serious: No
  Sender: FDA-Public Use
  Company Number: US-AMGEN-USASL2015063875

PATIENT
  Age: 83 Year
  Sex: Female

DRUGS (1)
  1. ENBREL [Suspect]
     Active Substance: ETANERCEPT
     Indication: RHEUMATOID ARTHRITIS
     Dosage: 50 MG, QWK
     Route: 065
     Dates: start: 20141021

REACTIONS (4)
  - Asthenia [Not Recovered/Not Resolved]
  - Limb discomfort [Not Recovered/Not Resolved]
  - Pain [Recovering/Resolving]
  - Fatigue [Not Recovered/Not Resolved]
